FAERS Safety Report 7055689-8 (Version None)
Quarter: 2010Q4

REPORT INFORMATION
  Report Type: 
  Country: None (occurrence: None)
  Receive Date: 20101020
  Receipt Date: 20101020
  Transmission Date: 20110411
  Serious: Yes (Hospitalization)
  Sender: FDA-Public Use
  Company Number: None

PATIENT
  Age: 59 Year
  Sex: Male
  Weight: 96 kg

DRUGS (2)
  1. HYDROCHLOROTHIAZIDE [Suspect]
     Indication: CORONARY ARTERY DISEASE
     Dosage: 12.5 MG EVERY DAY PO
     Route: 048
     Dates: start: 20090914, end: 20101014
  2. ATENOLOL [Suspect]
     Indication: HYPERTENSION
     Dosage: 25 MG EVERY DAY PO
     Route: 048
     Dates: start: 20100130, end: 20101014

REACTIONS (3)
  - BLOOD GLUCOSE DECREASED [None]
  - HYPOTENSION [None]
  - ORTHOSTATIC HYPOTENSION [None]
